FAERS Safety Report 5731983-5 (Version None)
Quarter: 2008Q2

REPORT INFORMATION
  Report Type: 
  Country: None (occurrence: None)
  Receive Date: 20080508
  Receipt Date: 20080428
  Transmission Date: 20081010
  Serious: Yes (Hospitalization, Other)
  Sender: FDA-Public Use
  Company Number: US-JNJFOC-20080407219

PATIENT
  Sex: Female
  Weight: 63.96 kg

DRUGS (11)
  1. INVEGA [Suspect]
     Indication: HALLUCINATION
     Route: 048
  2. INVEGA [Suspect]
     Indication: BORDERLINE PERSONALITY DISORDER
     Route: 048
  3. PROPRANOLOL [Concomitant]
     Indication: MIGRAINE PROPHYLAXIS
  4. PROZAC [Concomitant]
     Route: 048
  5. MAXALT [Concomitant]
     Indication: MIGRAINE
     Route: 048
  6. DILANTIN [Concomitant]
     Route: 048
  7. TRAZODONE HCL [Concomitant]
     Route: 048
  8. NALTREXONE HYDROCHLORIDE [Concomitant]
     Route: 048
  9. ZOCOR [Concomitant]
     Route: 048
  10. FISH OIL [Concomitant]
     Route: 048
  11. NALTREXONE HYDROCHLORIDE [Concomitant]
     Route: 030

REACTIONS (2)
  - GALACTORRHOEA [None]
  - HYPERPROLACTINAEMIA [None]
